FAERS Safety Report 8298539-4 (Version None)
Quarter: 2012Q2

REPORT INFORMATION
  Report Type: 
  Country: None (occurrence: None)
  Receive Date: 20120419
  Receipt Date: 20120413
  Transmission Date: 20120825
  Serious: No
  Sender: FDA-Public Use
  Company Number: US-ABBOTT-12P-163-0925597-00

PATIENT
  Sex: Female
  Weight: 45.3 kg

DRUGS (1)
  1. LUPRON DEPOT-PED [Suspect]
     Indication: PRECOCIOUS PUBERTY
     Dates: start: 20080101, end: 20110701

REACTIONS (2)
  - HYPERTENSION [None]
  - PROTEIN URINE PRESENT [None]
